FAERS Safety Report 25852476 (Version 1)
Quarter: 2025Q3

REPORT INFORMATION
  Report Type: Spontaneous
  Country: US (occurrence: None)
  Receive Date: 20250926
  Receipt Date: 20250926
  Transmission Date: 20251021
  Serious: Yes (Hospitalization)
  Sender: FDA-CTU
  Company Number: None

PATIENT
  Sex: Female

DRUGS (11)
  1. ORENCIA [Suspect]
     Active Substance: ABATACEPT
     Indication: Rheumatoid arthritis
     Route: 042
     Dates: start: 20240220
  2. ASPIRIN 81 TAB 81MG EC [Concomitant]
  3. BUSPIRONE  TAB 10MG [Concomitant]
  4. CLONAZEPAM TAB 0.5MG [Concomitant]
  5. CLONIDINE  TAB 0.1MG [Concomitant]
  6. DULOXETINE CAP 60MG DR [Concomitant]
  7. FAMOTIDINE [Concomitant]
     Active Substance: FAMOTIDINE
  8. FUROSEMIDE [Concomitant]
     Active Substance: FUROSEMIDE
  9. GABAPENTIN CAP 400MG [Concomitant]
  10. HYDROXYZ PAM CAP 100MG [Concomitant]
  11. LEFLUNOMIDE [Concomitant]
     Active Substance: LEFLUNOMIDE

REACTIONS (3)
  - Rehabilitation therapy [None]
  - Intentional dose omission [None]
  - Therapy interrupted [None]
